FAERS Safety Report 8357633-X (Version None)
Quarter: 2012Q2

REPORT INFORMATION
  Report Type: 
  Country: None (occurrence: None)
  Receive Date: 20120514
  Receipt Date: 20120507
  Transmission Date: 20120825
  Serious: No
  Sender: FDA-Public Use
  Company Number: US-PFIZER INC-2010103266

PATIENT
  Sex: Male

DRUGS (4)
  1. SUTENT [Suspect]
     Indication: METASTATIC RENAL CELL CARCINOMA
     Dosage: 50 MG, DAILY X 28 DAYS Q 42 DAYS
     Dates: start: 20100727
  2. SUTENT [Suspect]
     Indication: RENAL CANCER
     Dosage: 50 MG, DAILY X 28 DAYS THEN REST 14 DAYS
  3. SUTENT [Suspect]
     Indication: RENAL CELL CARCINOMA
     Dosage: 50 MG, 1X/DAY, CYCLE 4 WEEKS ON AND 2 OFF
     Dates: start: 20100727
  4. SUTENT [Suspect]
     Dosage: 50 MG, DAILY

REACTIONS (4)
  - RENAL CANCER METASTATIC [None]
  - FATIGUE [None]
  - DIARRHOEA [None]
  - DISEASE PROGRESSION [None]
